FAERS Safety Report 5934119-0 (Version None)
Quarter: 2008Q4

REPORT INFORMATION
  Report Type: 
  Country: None (occurrence: None)
  Receive Date: 20081028
  Receipt Date: 20081028
  Transmission Date: 20090506
  Serious: No
  Sender: FDA-Public Use
  Company Number: None

PATIENT
  Age: 65 Year
  Sex: Male
  Weight: 122.5 kg

DRUGS (1)
  1. LIDOCAINE AND EPINEPHRINE [Suspect]
     Indication: PROCEDURAL PAIN
     Dosage: ONCE
     Dates: start: 20080811, end: 20080811

REACTIONS (2)
  - LOCAL SWELLING [None]
  - POST PROCEDURAL COMPLICATION [None]
